FAERS Safety Report 12312190 (Version 3)
Quarter: 2016Q2

REPORT INFORMATION
  Report Type: Report from Study
  Country: JP (occurrence: JP)
  Receive Date: 20160427
  Receipt Date: 20160603
  Transmission Date: 20160815
  Serious: Yes (Hospitalization)
  Sender: FDA-Public Use
  Company Number: JP-AMGEN-JPNCT2016054127

PATIENT
  Age: 55 Year
  Sex: Female
  Weight: 45 kg

DRUGS (28)
  1. 5-FU                               /00098801/ [Suspect]
     Active Substance: FLUOROURACIL
     Indication: RECTAL CANCER
     Dosage: 400 MG/M2, Q2WK
     Route: 040
     Dates: start: 20160301, end: 20160413
  2. OXALIPLATIN. [Suspect]
     Active Substance: OXALIPLATIN
     Indication: METASTASES TO LYMPH NODES
     Dosage: UNK
     Route: 065
  3. CALCIUM LEVOFOLINATE [Concomitant]
     Active Substance: LEVOLEUCOVORIN CALCIUM
     Indication: RECTAL CANCER
     Dosage: 200 MG/M2, Q2WEEKS
     Route: 041
     Dates: start: 20160301, end: 20160413
  4. POLARAMINE [Concomitant]
     Active Substance: DEXCHLORPHENIRAMINE MALEATE
     Indication: ALLERGY PROPHYLAXIS
     Dosage: 5 MG, UNK
     Route: 041
     Dates: start: 20160413, end: 20160413
  5. 5-FU                               /00098801/ [Suspect]
     Active Substance: FLUOROURACIL
     Indication: METASTASES TO LUNG
     Dosage: 2400 MG/M2, Q2WK
     Route: 041
     Dates: start: 20160301, end: 20160413
  6. 5-FU                               /00098801/ [Suspect]
     Active Substance: FLUOROURACIL
     Dosage: 2400 MG/M2, Q2WK
     Route: 041
     Dates: start: 20160511
  7. OXALIPLATIN. [Suspect]
     Active Substance: OXALIPLATIN
     Indication: RECTAL CANCER
     Dosage: 85 MG/M2, Q2WEEKS
     Route: 041
     Dates: start: 20160301, end: 20160413
  8. HIRUDOID                           /00723701/ [Concomitant]
     Active Substance: PENTOSAN POLYSULFATE SODIUM
     Indication: RASH
     Dosage: UNK
     Route: 062
     Dates: start: 20160229
  9. MINOMYCIN [Concomitant]
     Active Substance: MINOCYCLINE HYDROCHLORIDE
     Indication: PROPHYLAXIS
     Dosage: UNK
     Route: 065
  10. DEXART [Concomitant]
     Active Substance: DEXAMETHASONE SODIUM PHOSPHATE
     Indication: PROPHYLAXIS OF NAUSEA AND VOMITING
     Dosage: 13.2 MG, UNK
     Route: 041
     Dates: start: 20160413, end: 20160413
  11. PANITUMUMAB [Suspect]
     Active Substance: PANITUMUMAB
     Indication: RECTAL CANCER
     Dosage: 6 MG/KG, Q2WK
     Route: 041
     Dates: start: 20160301, end: 20160413
  12. CALCIUM LEVOFOLINATE [Concomitant]
     Active Substance: LEVOLEUCOVORIN CALCIUM
     Indication: METASTASES TO LUNG
     Dosage: 200 MG/M2, Q2WEEKS
     Route: 041
     Dates: start: 20160511
  13. LOCOID [Concomitant]
     Active Substance: HYDROCORTISONE BUTYRATE
     Indication: RASH
     Dosage: UNK
     Route: 062
     Dates: start: 20160229
  14. HIRUDOID [Concomitant]
     Active Substance: GLYCOSAMINOGLYCANS
     Indication: RASH
     Dosage: UNK
     Route: 062
     Dates: start: 20160229
  15. ALOXI [Suspect]
     Active Substance: PALONOSETRON HYDROCHLORIDE
     Indication: PROPHYLAXIS OF NAUSEA AND VOMITING
     Dosage: 0.75 MG, UNK
     Route: 041
     Dates: start: 20160413, end: 20160413
  16. CALCIUM LEVOFOLINATE [Concomitant]
     Active Substance: LEVOLEUCOVORIN CALCIUM
     Indication: METASTASES TO LYMPH NODES
     Dosage: UNK
     Route: 065
  17. 5-FU                               /00098801/ [Suspect]
     Active Substance: FLUOROURACIL
     Indication: METASTASES TO LYMPH NODES
     Dosage: 400 MG/M2, Q2WK
     Route: 040
     Dates: start: 20160511
  18. DECADRON [Concomitant]
     Active Substance: DEXAMETHASONE
     Indication: PROPHYLAXIS OF NAUSEA AND VOMITING
     Dosage: 2 MG, BID
     Route: 048
     Dates: start: 20160414, end: 20160417
  19. LOCOID [Concomitant]
     Active Substance: HYDROCORTISONE BUTYRATE
     Indication: PROPHYLAXIS
     Dosage: UNK
     Route: 065
  20. ANTEBATE [Concomitant]
     Active Substance: BETAMETHASONE DIPROPIONATE
     Indication: RASH
     Dosage: UNK
     Route: 062
     Dates: start: 20160229
  21. GASTER [Concomitant]
     Active Substance: FAMOTIDINE
     Indication: ALLERGY PROPHYLAXIS
     Dosage: 20 MG, UNK
     Route: 041
     Dates: start: 20160413, end: 20160413
  22. HIRUDOID [Concomitant]
     Active Substance: GLYCOSAMINOGLYCANS
     Indication: PROPHYLAXIS
  23. OXALIPLATIN. [Suspect]
     Active Substance: OXALIPLATIN
     Indication: METASTASES TO LUNG
     Dosage: 85 MG/M2, Q2WEEKS
     Route: 041
     Dates: start: 20160511
  24. ANTEBATE [Concomitant]
     Active Substance: BETAMETHASONE DIPROPIONATE
     Dosage: UNK
     Route: 065
  25. MINOMYCIN [Concomitant]
     Active Substance: MINOCYCLINE HYDROCHLORIDE
     Indication: RASH
     Dosage: 50 MG, TID
     Route: 048
     Dates: start: 20160229
  26. PANITUMUMAB [Suspect]
     Active Substance: PANITUMUMAB
     Indication: METASTASES TO LUNG
     Dosage: 6 MG/KG, Q2WK
     Route: 041
     Dates: start: 20160511
  27. PANITUMUMAB [Suspect]
     Active Substance: PANITUMUMAB
     Indication: METASTASES TO LYMPH NODES
     Dosage: UNK
     Route: 065
  28. HIRUDOID                           /00723701/ [Concomitant]
     Active Substance: PENTOSAN POLYSULFATE SODIUM
     Indication: PROPHYLAXIS
     Dosage: UNK
     Route: 065

REACTIONS (9)
  - Hypersensitivity [Recovered/Resolved]
  - Stomatitis [Unknown]
  - Neuropathy peripheral [Unknown]
  - Rash [Unknown]
  - Colitis ischaemic [Recovered/Resolved]
  - Diarrhoea [Unknown]
  - Malaise [Unknown]
  - Nausea [Unknown]
  - Decreased appetite [Unknown]

NARRATIVE: CASE EVENT DATE: 20160301
